FAERS Safety Report 20653155 (Version 3)
Quarter: 2022Q2

REPORT INFORMATION
  Report Type: Report from Study
  Country: CA (occurrence: CA)
  Receive Date: 20220330
  Receipt Date: 20220413
  Transmission Date: 20220720
  Serious: Yes (Other)
  Sender: FDA-Public Use
  Company Number: CA-NOVARTISPH-NVSC2021CA208849

PATIENT
  Age: 66 Year
  Sex: Male

DRUGS (7)
  1. AFINITOR [Suspect]
     Active Substance: EVEROLIMUS
     Indication: Pancreatic neuroendocrine tumour
     Dosage: 10 MG, QD
     Route: 048
     Dates: start: 20210801, end: 202203
  2. AFINITOR [Suspect]
     Active Substance: EVEROLIMUS
     Dosage: UNK
     Route: 065
     Dates: start: 20210809
  3. SANDOSTATIN LAR DEPOT [Suspect]
     Active Substance: OCTREOTIDE ACETATE
     Indication: Carcinoid tumour
     Dosage: 30 MG, Q4W
     Route: 030
     Dates: start: 20210715
  4. SANDOSTATIN LAR DEPOT [Suspect]
     Active Substance: OCTREOTIDE ACETATE
  5. SANDOSTATIN LAR DEPOT [Suspect]
     Active Substance: OCTREOTIDE ACETATE
  6. ATORVASTATIN [Concomitant]
     Active Substance: ATORVASTATIN
     Indication: Product used for unknown indication
     Dosage: 40 MG
     Route: 065
  7. ATORVASTATIN [Concomitant]
     Active Substance: ATORVASTATIN
     Dosage: 10 MG
     Route: 065

REACTIONS (7)
  - Pneumonia [Unknown]
  - Pneumothorax [Unknown]
  - Stress [Unknown]
  - Blood pressure increased [Unknown]
  - Pneumonitis [Unknown]
  - Dyspnoea [Unknown]
  - Diarrhoea [Recovering/Resolving]

NARRATIVE: CASE EVENT DATE: 20210910
